FAERS Safety Report 10034352 (Version 1)
Quarter: 2014Q1

REPORT INFORMATION
  Report Type: Spontaneous
  Country: US (occurrence: None)
  Receive Date: 20140324
  Receipt Date: 20140324
  Transmission Date: 20141002
  Serious: Yes (Other)
  Sender: FDA-Public Use
  Company Number: None

PATIENT
  Age: 58 Year
  Sex: Female

DRUGS (1)
  1. ESTRING [Suspect]
     Indication: MENOPAUSE
     Dosage: RING, VAGINAL
     Route: 067

REACTIONS (7)
  - Nausea [None]
  - Abdominal pain upper [None]
  - Hyperhidrosis [None]
  - Malaise [None]
  - Body temperature increased [None]
  - Feeling cold [None]
  - Medical device complication [None]
